FAERS Safety Report 15928407 (Version 1)
Quarter: 2019Q1

REPORT INFORMATION
  Report Type: Report from Study
  Country: AT (occurrence: AT)
  Receive Date: 20190206
  Receipt Date: 20190206
  Transmission Date: 20190417
  Serious: Yes (Other)
  Sender: FDA-Public Use
  Company Number: AT-BAYER-2019-025714

PATIENT
  Age: 58 Year
  Sex: Female

DRUGS (1)
  1. STIVARGA [Suspect]
     Active Substance: REGORAFENIB
     Indication: GASTROINTESTINAL STROMAL TUMOUR

REACTIONS (6)
  - Neuropathy peripheral [None]
  - Dizziness [None]
  - Decreased appetite [None]
  - Fatigue [None]
  - Diarrhoea [None]
  - Weight decreased [None]
